FAERS Safety Report 20903261 (Version 2)
Quarter: 2022Q2

REPORT INFORMATION
  Report Type: Spontaneous
  Country: US (occurrence: US)
  Receive Date: 20220601
  Receipt Date: 20220607
  Transmission Date: 20220720
  Serious: Yes (Death, Other)
  Sender: FDA-Public Use
  Company Number: US-SEATTLE GENETICS-2022SGN05197

PATIENT

DRUGS (1)
  1. ADCETRIS [Suspect]
     Active Substance: BRENTUXIMAB VEDOTIN
     Indication: Product used for unknown indication
     Dosage: 50 MG/VIAL
     Route: 065
     Dates: start: 20180529, end: 20191226

REACTIONS (1)
  - Death [Fatal]
